FAERS Safety Report 23260634 (Version 1)
Quarter: 2023Q4

REPORT INFORMATION
  Report Type: Spontaneous
  Country: RO (occurrence: RO)
  Receive Date: 20231205
  Receipt Date: 20231205
  Transmission Date: 20240110
  Serious: Yes (Hospitalization, Other)
  Sender: FDA-Public Use
  Company Number: RO-drreddys-LIT/ROM/23/0187704

PATIENT
  Age: 44 Year
  Sex: Female

DRUGS (4)
  1. CAPECITABINE [Suspect]
     Active Substance: CAPECITABINE
     Indication: Breast cancer
  2. CYCLOPHOSPHAMIDE [Suspect]
     Active Substance: CYCLOPHOSPHAMIDE
     Indication: Breast cancer
  3. EPIRUBICIN [Suspect]
     Active Substance: EPIRUBICIN
     Indication: Product used for unknown indication
  4. PACLITAXEL [Suspect]
     Active Substance: PACLITAXEL
     Indication: Product used for unknown indication

REACTIONS (3)
  - Pneumocystis jirovecii pneumonia [Unknown]
  - Metastases to central nervous system [Unknown]
  - Aspergillus infection [Unknown]
